FAERS Safety Report 25759786 (Version 1)
Quarter: 2025Q3

REPORT INFORMATION
  Report Type: Report from Study
  Country: US (occurrence: US)
  Receive Date: 20250904
  Receipt Date: 20250904
  Transmission Date: 20251021
  Serious: No
  Sender: SUNOVION
  Company Number: US-SUMITOMO PHARMA SWITZERLAND GMBH-2025SPA011092

PATIENT
  Age: 75 Year
  Sex: Male

DRUGS (13)
  1. ORGOVYX [Suspect]
     Active Substance: RELUGOLIX
     Indication: Prostate cancer
     Route: 048
  2. ORGOVYX [Suspect]
     Active Substance: RELUGOLIX
     Route: 048
  3. LISINOPRIL [Concomitant]
     Active Substance: LISINOPRIL
  4. TAMSULOSIN [Concomitant]
     Active Substance: TAMSULOSIN
  5. ATENOLOL [Concomitant]
     Active Substance: ATENOLOL
  6. CREON [Concomitant]
     Active Substance: PANCRELIPASE AMYLASE\PANCRELIPASE LIPASE\PANCRELIPASE PROTEASE
  7. DICYCLOMINE [Concomitant]
     Active Substance: DICYCLOMINE HYDROCHLORIDE
  8. DUPIXENT [Concomitant]
     Active Substance: DUPILUMAB
  9. FENOFIBRATE [Concomitant]
     Active Substance: FENOFIBRATE
  10. LANTUS [Concomitant]
     Active Substance: INSULIN GLARGINE
  11. PANTOPRAZOLE [Concomitant]
     Active Substance: PANTOPRAZOLE
  12. MIRALAX [Concomitant]
     Active Substance: POLYETHYLENE GLYCOL 3350
  13. IBUPROFEN [Concomitant]
     Active Substance: IBUPROFEN

REACTIONS (1)
  - Hot flush [Unknown]
